FAERS Safety Report 9758809 (Version 1)
Quarter: 2013Q4

REPORT INFORMATION
  Report Type: Spontaneous
  Country: US (occurrence: None)
  Receive Date: 20131216
  Receipt Date: 20131216
  Transmission Date: 20140711
  Serious: Yes (Other)
  Sender: FDA-Public Use
  Company Number: 084264

PATIENT
  Sex: Male

DRUGS (1)
  1. CIMZIA [Suspect]
     Dosage: (3 INDUCTION DOSES)

REACTIONS (6)
  - Psoriasis [None]
  - Injection site haemorrhage [None]
  - Injection site reaction [None]
  - Rhinorrhoea [None]
  - Sinus headache [None]
  - Nasal discharge discolouration [None]
